FAERS Safety Report 7059777-1 (Version None)
Quarter: 2010Q4

REPORT INFORMATION
  Report Type: 
  Country: None (occurrence: None)
  Receive Date: 20101025
  Receipt Date: 20101020
  Transmission Date: 20110411
  Serious: Yes (Other)
  Sender: FDA-Public Use
  Company Number: FR-PFIZER INC-2010125327

PATIENT
  Age: 57 Year
  Sex: Male
  Weight: 77 kg

DRUGS (5)
  1. CELEBREX [Suspect]
     Indication: BACK PAIN
     Dosage: 200 MG, 2X/DAY
     Route: 048
     Dates: start: 20100816, end: 20100820
  2. CELEBREX [Suspect]
     Dosage: 200 MG, 1X/DAY
     Route: 048
  3. OGAST [Concomitant]
     Indication: HIATUS HERNIA
     Dosage: 15 MG, 1X/DAY
     Route: 048
     Dates: start: 20020101
  4. LAMALINE [Concomitant]
     Indication: BACK PAIN
     Dosage: UNK DF, 2X/DAY
     Route: 048
     Dates: start: 20100816, end: 20101006
  5. EFFERALGAN CODEINE [Concomitant]
     Indication: BACK PAIN
     Dosage: 2 DF, 1X/DAY
     Route: 048
     Dates: start: 20100816, end: 20101006

REACTIONS (1)
  - RETINAL DETACHMENT [None]
